FAERS Safety Report 16838929 (Version 2)
Quarter: 2019Q4

REPORT INFORMATION
  Report Type: Spontaneous
  Country: DE (occurrence: DE)
  Receive Date: 20190923
  Receipt Date: 20191004
  Transmission Date: 20200122
  Serious: No
  Sender: FDA-Public Use
  Company Number: DE-GLAXOSMITHKLINE-DE2019GSK171045

PATIENT
  Age: 75 Year
  Sex: Female
  Weight: 60 kg

DRUGS (4)
  1. METRONIDAZOLE. [Suspect]
     Active Substance: METRONIDAZOLE
     Indication: DIVERTICULITIS
     Dosage: 400 MG, BID (400 MG,12 HR))
     Route: 048
     Dates: start: 20190830, end: 20190903
  2. METRONIDAZOLE. [Suspect]
     Active Substance: METRONIDAZOLE
     Dosage: UNK (8 HR)
     Route: 065
     Dates: start: 20190825, end: 20190830
  3. CEFUROXIME AXETIL. [Suspect]
     Active Substance: CEFUROXIME AXETIL
     Indication: DIVERTICULITIS
     Dosage: 500 MG, TID (500 MG,8 HR)
     Route: 048
     Dates: start: 20190830, end: 20190902
  4. CEFUROXIME AXETIL. [Suspect]
     Active Substance: CEFUROXIME AXETIL
     Dosage: UNK (8 HR)
     Route: 065
     Dates: start: 20190825, end: 20190830

REACTIONS (4)
  - Blood pressure increased [Not Recovered/Not Resolved]
  - Erythema [Unknown]
  - Drug interaction [Unknown]
  - Pruritus [Unknown]

NARRATIVE: CASE EVENT DATE: 20190825
